FAERS Safety Report 7834956-1 (Version None)
Quarter: 2011Q4

REPORT INFORMATION
  Report Type: 
  Country: None (occurrence: None)
  Receive Date: 20111020
  Receipt Date: 20111013
  Transmission Date: 20120403
  Serious: Yes (Congenital Anomaly, Other)
  Sender: FDA-Public Use
  Company Number: GER/UKI/11/0021559

PATIENT

DRUGS (5)
  1. LEVOTHYROXINE SODIUM [Concomitant]
  2. QVAR [Concomitant]
  3. FLUOXETINE HYDROCHLORIDE [Suspect]
     Indication: PRODUCT USED FOR UNKNOWN INDICATION
     Dosage: TRANSPLACENTAL
     Route: 064
     Dates: start: 20100128, end: 20110819
  4. SULFASALAZINE [Concomitant]
  5. FERROUS FUMARATE [Concomitant]

REACTIONS (2)
  - CLEFT PALATE [None]
  - MATERNAL DRUGS AFFECTING FOETUS [None]
